FAERS Safety Report 15878583 (Version 1)
Quarter: 2019Q1

REPORT INFORMATION
  Report Type: Spontaneous
  Country: DE (occurrence: DE)
  Receive Date: 20190128
  Receipt Date: 20190128
  Transmission Date: 20190417
  Serious: Yes (Hospitalization)
  Sender: FDA-Public Use
  Company Number: DE-AUROBINDO-AUR-APL-2018-060096

PATIENT
  Sex: Female
  Weight: 70 kg

DRUGS (4)
  1. NOVAMINSULFON [Suspect]
     Active Substance: METAMIZOLE
     Indication: PRODUCT USED FOR UNKNOWN INDICATION
     Dosage: UNK
     Route: 065
  2. LETROZOLE. [Suspect]
     Active Substance: LETROZOLE
     Indication: BREAST CANCER METASTATIC
     Dosage: 2.5 MILLIGRAM
     Route: 048
     Dates: start: 20180912, end: 20180923
  3. NOVAMINSULFON [Suspect]
     Active Substance: METAMIZOLE
     Dosage: 30DROPS
     Route: 048
     Dates: start: 2018, end: 20180923
  4. KISQALI [Suspect]
     Active Substance: RIBOCICLIB
     Indication: BREAST CANCER METASTATIC
     Dosage: 600 MILLIGRAM
     Route: 048
     Dates: start: 20180912

REACTIONS (7)
  - Blood sodium decreased [Unknown]
  - Blood potassium decreased [Unknown]
  - White blood cell count decreased [Unknown]
  - Urine ketone body present [Unknown]
  - Gastroenteritis [Recovered/Resolved]
  - C-reactive protein increased [Unknown]
  - Haemoglobin decreased [Unknown]

NARRATIVE: CASE EVENT DATE: 20180923
